FAERS Safety Report 4776925-4 (Version None)
Quarter: 2005Q3

REPORT INFORMATION
  Report Type: 
  Country: None (occurrence: None)
  Receive Date: 20050923
  Receipt Date: 20050914
  Transmission Date: 20060218
  Serious: Yes (Death, Other)
  Sender: FDA-Public Use
  Company Number: JP-SANOFI-SYNTHELABO-F01200501885

PATIENT
  Sex: Female
  Weight: 45 kg

DRUGS (3)
  1. OXALIPLATIN [Suspect]
     Indication: COLON CANCER
     Route: 042
     Dates: start: 20050810, end: 20050810
  2. FLUOROURACIL [Suspect]
     Dosage: 500 MG (375.9 MG/M2) IV BOLUS THEN 750 MG (563.9 MG/M2) CONTINUOUS INFUSION DAYS 1+2, Q2W
     Route: 042
     Dates: start: 20050810, end: 20050811
  3. CALCIUM LEVOFOLINATE [Suspect]
     Route: 042
     Dates: start: 20050810, end: 20050811

REACTIONS (5)
  - BLOOD CREATININE INCREASED [None]
  - HAEMOGLOBIN DECREASED [None]
  - LEUKOPENIA [None]
  - NEUTROPENIA [None]
  - THROMBOCYTOPENIA [None]
